FAERS Safety Report 7837779 (Version 5)
Quarter: 2013Q2

REPORT INFORMATION
  Report Type: Spontaneous
  Country: US (occurrence: US)
  Receive Date: 20110302
  Receipt Date: 20130424
  Transmission Date: 20140414
  Serious: Yes (Hospitalization, Other)
  Sender: FDA-Public Use
  Company Number: US-PFIZER INC-2010022190

PATIENT
  Age: 9 Year
  Sex: Male
  Weight: 40 kg

DRUGS (2)
  1. DILANTIN-125 [Suspect]
     Indication: CONVULSION
     Dosage: 150 MG, 1X/DAY, AT BED TIME
     Dates: start: 2002
  2. TOPAMAX [Concomitant]
     Indication: CONVULSION
     Dosage: 25 MG AND DOUBLE EVERY 2 WEEKS TILL 50 BID
     Dates: start: 20021029

REACTIONS (1)
  - Stevens-Johnson syndrome [Recovering/Resolving]
